FAERS Safety Report 8366881-4 (Version None)
Quarter: 2012Q2

REPORT INFORMATION
  Report Type: 
  Country: None (occurrence: None)
  Receive Date: 20120517
  Receipt Date: 20120511
  Transmission Date: 20120825
  Serious: Yes (Other)
  Sender: FDA-Public Use
  Company Number: US-PFIZER INC-2012115460

PATIENT
  Sex: Male
  Weight: 97.506 kg

DRUGS (2)
  1. XOPENEX [Concomitant]
     Indication: CHRONIC OBSTRUCTIVE PULMONARY DISEASE
     Dosage: UNK
  2. PREPARATION H COOLING [Suspect]
     Indication: HAEMORRHOIDS
     Dosage: UNK
     Dates: start: 20120509, end: 20120509

REACTIONS (1)
  - HAEMORRHAGE [None]
